FAERS Safety Report 7386979-7 (Version None)
Quarter: 2011Q1

REPORT INFORMATION
  Report Type: 
  Country: None (occurrence: None)
  Receive Date: 20110331
  Receipt Date: 20110321
  Transmission Date: 20110831
  Serious: Yes (Life-Threatening, Hospitalization, Other)
  Sender: FDA-Public Use
  Company Number: US-PFIZER INC-2011062765

PATIENT
  Sex: Female

DRUGS (3)
  1. CELEBREX [Suspect]
     Indication: ARTHRITIS
     Dosage: UNK
  2. REBIF [Suspect]
     Dosage: 44 UG, 3 IN 1 WEEK
     Route: 058
     Dates: start: 20080530
  3. REBIF [Suspect]
     Indication: MULTIPLE SCLEROSIS
     Dosage: 44 UG, 3 IN 1 WEEK
     Route: 058
     Dates: start: 20050501, end: 20071001

REACTIONS (14)
  - VENOUS THROMBOSIS [None]
  - INFLUENZA [None]
  - BODY TEMPERATURE INCREASED [None]
  - MULTIPLE SCLEROSIS RELAPSE [None]
  - INJECTION SITE ERYTHEMA [None]
  - LOSS OF CONSCIOUSNESS [None]
  - THROMBOSIS [None]
  - PNEUMONIA [None]
  - UPPER RESPIRATORY TRACT INFECTION [None]
  - PULMONARY THROMBOSIS [None]
  - ARTERIAL THROMBOSIS [None]
  - INTERNATIONAL NORMALISED RATIO DECREASED [None]
  - SINUSITIS [None]
  - INFLUENZA LIKE ILLNESS [None]
